FAERS Safety Report 23435176 (Version 1)
Quarter: 2024Q1

REPORT INFORMATION
  Report Type: Spontaneous
  Country: US (occurrence: US)
  Receive Date: 20240123
  Receipt Date: 20240123
  Transmission Date: 20240410
  Serious: No
  Sender: FDA-Public Use
  Company Number: US-BIOGEN-2024BI01245939

PATIENT
  Sex: Female

DRUGS (3)
  1. SKYCLARYS [Suspect]
     Active Substance: OMAVELOXOLONE
     Indication: Friedreich^s ataxia
     Route: 050
     Dates: start: 20231213
  2. HYDROXYZINE [Suspect]
     Active Substance: HYDROXYZINE HYDROCHLORIDE
     Indication: Product used for unknown indication
     Route: 050
  3. LORATADINE [Suspect]
     Active Substance: LORATADINE
     Indication: Product used for unknown indication
     Route: 050

REACTIONS (4)
  - Hypersomnia [Unknown]
  - Dysstasia [Unknown]
  - Somnolence [Unknown]
  - Asthenia [Unknown]
